FAERS Safety Report 8153531-5 (Version None)
Quarter: 2012Q1

REPORT INFORMATION
  Report Type: 
  Country: None (occurrence: None)
  Receive Date: 20120221
  Receipt Date: 20120214
  Transmission Date: 20120608
  Serious: Yes (Other)
  Sender: FDA-Public Use
  Company Number: GB-UCBSA-051754

PATIENT
  Age: 43 Year
  Sex: Female

DRUGS (8)
  1. HYDROXYCHLOROQUINE SULFATE [Concomitant]
  2. METHOTREXATE [Concomitant]
  3. METFORMIN HCL [Concomitant]
  4. CIMZIA [Suspect]
     Indication: RHEUMATOID ARTHRITIS
     Route: 058
     Dates: start: 20120101
  5. AZULFIDINE [Concomitant]
     Dosage: 500 MG 2 X BD
  6. FOLIC ACID [Concomitant]
     Dosage: 5 MG WEEKLY
  7. GLICLAZIDE [Concomitant]
  8. INSULIN [Concomitant]
     Dosage: NOS

REACTIONS (3)
  - DYSPHAGIA [None]
  - MASS [None]
  - SWELLING FACE [None]
